FAERS Safety Report 6821326-8 (Version None)
Quarter: 2010Q3

REPORT INFORMATION
  Report Type: 
  Country: None (occurrence: None)
  Receive Date: 20100707
  Receipt Date: 20080606
  Transmission Date: 20110219
  Serious: No
  Sender: FDA-Public Use
  Company Number: US-PFIZER INC-2008045076

PATIENT
  Sex: Female
  Weight: 81.4 kg

DRUGS (3)
  1. ZOLOFT [Suspect]
     Indication: DEPRESSION
     Route: 048
  2. SYNTHROID [Concomitant]
  3. TENORETIC 100 [Concomitant]

REACTIONS (4)
  - BALANCE DISORDER [None]
  - DEPRESSION [None]
  - FEELING ABNORMAL [None]
  - PERFORMANCE STATUS DECREASED [None]
